FAERS Safety Report 12744860 (Version 1)
Quarter: 2016Q3

REPORT INFORMATION
  Report Type: Spontaneous
  Country: None (occurrence: US)
  Receive Date: 20160915
  Receipt Date: 20160915
  Transmission Date: 20161109
  Serious: No
  Sender: FDA-Public Use
  Company Number: US-LUPIN PHARMACEUTICALS INC.-2016-02749

PATIENT
  Sex: Male

DRUGS (1)
  1. AMLODIPINE/VALSARTAN/HYDROCHLORTHIAZIDE [Suspect]
     Active Substance: AMLODIPINE BESYLATE\HYDROCHLOROTHIAZIDE\VALSARTAN
     Indication: HYPERTENSION
     Route: 065

REACTIONS (3)
  - Burning sensation [Unknown]
  - Blood pressure increased [Unknown]
  - Drug ineffective [Unknown]
